FAERS Safety Report 6531421-9 (Version None)
Quarter: 2010Q1

REPORT INFORMATION
  Report Type: 
  Country: None (occurrence: None)
  Receive Date: 20100108
  Receipt Date: 20091119
  Transmission Date: 20100710
  Serious: No
  Sender: FDA-Public Use
  Company Number: A0818143A

PATIENT
  Sex: Female

DRUGS (1)
  1. TYKERB [Suspect]

REACTIONS (3)
  - DIARRHOEA [None]
  - NASAL DRYNESS [None]
  - VOMITING [None]
